FAERS Safety Report 10986043 (Version 1)
Quarter: 2015Q2

REPORT INFORMATION
  Report Type: Spontaneous
  Country: US (occurrence: None)
  Receive Date: 20150403
  Receipt Date: 20150403
  Transmission Date: 20150821
  Serious: Yes (Hospitalization)
  Sender: FDA-Public Use
  Company Number: None

PATIENT
  Age: 5 Year
  Sex: Female
  Weight: 19.05 kg

DRUGS (6)
  1. MIRALAX [Suspect]
     Active Substance: POLYETHYLENE GLYCOL 3350
     Indication: CONSTIPATION
     Dosage: 1 CAPFUL ONCE DAILY MIXED IN MILK (SOYMILK)
  2. PULMICORT TURBUHALER [Concomitant]
     Active Substance: BUDESONIDE
  3. NASONEX [Concomitant]
     Active Substance: MOMETASONE FUROATE
  4. ALBUTEROL. [Concomitant]
     Active Substance: ALBUTEROL
  5. CLARITIN CHEWABLES [Concomitant]
  6. XOPENEX [Concomitant]
     Active Substance: LEVALBUTEROL HYDROCHLORIDE

REACTIONS (10)
  - Nervous system disorder [None]
  - Hemiplegia [None]
  - Anger [None]
  - Seizure [None]
  - Hallucination, auditory [None]
  - Incoherent [None]
  - Depression [None]
  - Mental disorder [None]
  - Depressed mood [None]
  - Anxiety [None]

NARRATIVE: CASE EVENT DATE: 20150314
